FAERS Safety Report 15089902 (Version 1)
Quarter: 2018Q2

REPORT INFORMATION
  Report Type: Spontaneous
  Country: US (occurrence: US)
  Receive Date: 20180629
  Receipt Date: 20180629
  Transmission Date: 20180711
  Serious: No
  Sender: FDA-Public Use
  Company Number: US-APOTEX-2018AP010388

PATIENT
  Age: 35 Year
  Sex: Female

DRUGS (6)
  1. AZATHIOPRINE. [Concomitant]
     Active Substance: AZATHIOPRINE
     Indication: INTERSTITIAL LUNG DISEASE
     Dosage: 50 MG, PER DAY
     Route: 065
  2. DAPSONE. [Concomitant]
     Active Substance: DAPSONE
     Indication: INTERSTITIAL LUNG DISEASE
     Dosage: 100 MG, PER DAY
     Route: 065
  3. PREDNISONE. [Concomitant]
     Active Substance: PREDNISONE
     Indication: INTERSTITIAL LUNG DISEASE
     Dosage: 80 MG, PER DAY
     Route: 065
  4. ASPIRIN                            /00002701/ [Concomitant]
     Active Substance: ASPIRIN
     Indication: SEGMENTED HYALINISING VASCULITIS
     Dosage: UNK
     Route: 065
  5. CLOPIDOGREL [Suspect]
     Active Substance: CLOPIDOGREL BISULFATE
     Indication: SEGMENTED HYALINISING VASCULITIS
     Dosage: 75 MG, QD
     Route: 065
  6. AZATHIOPRINE. [Concomitant]
     Active Substance: AZATHIOPRINE
     Dosage: 200 MG, PER DAY
     Route: 065

REACTIONS (1)
  - Syncope [Unknown]
